FAERS Safety Report 16980034 (Version 1)
Quarter: 2019Q4

REPORT INFORMATION
  Report Type: Spontaneous
  Country: US (occurrence: US)
  Receive Date: 20191031
  Receipt Date: 20191031
  Transmission Date: 20200122
  Serious: Yes (Hospitalization)
  Sender: FDA-Public Use
  Company Number: US-AMNEAL PHARMACEUTICALS-2019-AMRX-02355

PATIENT
  Age: 49 Year
  Sex: Female
  Weight: 131 kg

DRUGS (12)
  1. MYCOSTATIN [Concomitant]
     Active Substance: NYSTATIN
     Indication: SKIN INFECTION
     Dosage: 100000 UNIT/GRAM, BID
     Route: 061
     Dates: start: 20170606, end: 20170608
  2. ELAGOLIX [Suspect]
     Active Substance: ELAGOLIX
     Indication: UTERINE LEIOMYOMA
     Dosage: 300 MILLIGRAM, 2 DOSAGE FORM, DAILY
     Route: 048
     Dates: start: 20170404, end: 20170627
  3. NAPROXEN. [Concomitant]
     Active Substance: NAPROXEN
     Indication: DYSMENORRHOEA
     Dosage: 220 MILLIGRAM, AS REQUIRED
     Route: 048
     Dates: start: 20000101
  4. HYDRODIURIL [Concomitant]
     Active Substance: HYDROCHLOROTHIAZIDE
     Indication: HYPERTENSION
     Dosage: 25 MILLIGRAM, QD
     Route: 048
     Dates: start: 20170606, end: 20170608
  5. AMLODIPINE BESYLATE. [Concomitant]
     Active Substance: AMLODIPINE BESYLATE
     Indication: HYPERTENSION
     Dosage: 10 MILLIGRAM, QD
     Route: 048
     Dates: start: 19990101
  6. COZAAR [Concomitant]
     Active Substance: LOSARTAN POTASSIUM
     Indication: HYPERTENSION
     Dosage: 25 MILLIGRAM, QD
     Route: 048
     Dates: start: 20170606, end: 20170608
  7. ACTIVELLA [Suspect]
     Active Substance: ESTRADIOL\NORETHINDRONE ACETATE
     Indication: UTERINE LEIOMYOMA
     Dosage: 2 DOSAGE FORM, QD
     Route: 048
     Dates: start: 20170404, end: 20170627
  8. LOVENOX [Concomitant]
     Active Substance: ENOXAPARIN SODIUM
     Indication: THROMBOSIS PROPHYLAXIS
     Dosage: 2 DOSAGE FORM, 1 /DAY (40/0.4 MG/ML, )
     Route: 042
     Dates: start: 20170606, end: 20170606
  9. CATAPRES [Concomitant]
     Active Substance: CLONIDINE HYDROCHLORIDE
     Indication: HYPERTENSION
     Dosage: 0.1 MILLIGRAM, AS REQUIRED
     Route: 048
     Dates: start: 20170608
  10. IBUPROFEN. [Concomitant]
     Active Substance: IBUPROFEN
     Indication: DYSMENORRHOEA
     Dosage: 200 MILLIGRAM, AS REQUIRED
     Route: 048
     Dates: start: 20000101
  11. DIFLUCAN [Concomitant]
     Active Substance: FLUCONAZOLE
     Indication: PROPHYLAXIS
     Dosage: 200 MILLIGRAM, 2 DOSAGE FORM, DAILY
     Route: 048
     Dates: start: 20170609, end: 20170611
  12. FERROUS SULFATE. [Concomitant]
     Active Substance: FERROUS SULFATE
     Indication: ANAEMIA
     Dosage: 325 MILLIGRAM, QD
     Route: 048
     Dates: start: 20160831

REACTIONS (2)
  - Sepsis [Recovered/Resolved]
  - Product use in unapproved indication [Unknown]

NARRATIVE: CASE EVENT DATE: 20170404
